FAERS Safety Report 25740283 (Version 2)
Quarter: 2025Q3

REPORT INFORMATION
  Report Type: Report from Study
  Country: US (occurrence: US)
  Receive Date: 20250829
  Receipt Date: 20250909
  Transmission Date: 20251020
  Serious: Yes (Hospitalization, Other)
  Sender: ABBVIE
  Company Number: US-ABBVIE-6435219

PATIENT
  Sex: Male

DRUGS (1)
  1. SYNTHROID [Suspect]
     Active Substance: LEVOTHYROXINE SODIUM
     Indication: Product used for unknown indication
     Dosage: TAKE ONE TABLET EVERY MORNING BEFORE BREAKFAST.
     Route: 048
     Dates: start: 200102

REACTIONS (3)
  - Concussion [Unknown]
  - Hospitalisation [Unknown]
  - Neoplasm malignant [Unknown]
